FAERS Safety Report 4860926-1 (Version None)
Quarter: 2005Q4

REPORT INFORMATION
  Report Type: 
  Country: None (occurrence: None)
  Receive Date: 20051216
  Receipt Date: 20051216
  Transmission Date: 20060501
  Serious: Yes (Hospitalization, Disabling)
  Sender: FDA-Public Use
  Company Number: None

PATIENT
  Age: 85 Year
  Sex: Female
  Weight: 63 kg

DRUGS (9)
  1. DETROL LA [Suspect]
     Indication: INCONTINENCE
     Dosage: 4MG   BID   PO
     Route: 048
     Dates: start: 20041110, end: 20051028
  2. FUROSEMIDE [Suspect]
     Indication: HYPERTENSION
     Dosage: 80MG   QD  PO
     Route: 048
     Dates: start: 20040911, end: 20051028
  3. TOPROL-XL [Concomitant]
  4. PLAVIX [Concomitant]
  5. K [Concomitant]
  6. ASPIRIN [Concomitant]
  7. ALLOPURINOL [Concomitant]
  8. ULTRACET [Concomitant]
  9. MOM [Concomitant]

REACTIONS (9)
  - AZOTAEMIA [None]
  - BLADDER DISTENSION [None]
  - HEPATIC ENZYME INCREASED [None]
  - HYDRONEPHROSIS [None]
  - HYPOCHLORAEMIA [None]
  - HYPONATRAEMIA [None]
  - NAUSEA [None]
  - URINE OUTPUT DECREASED [None]
  - VOMITING [None]
